FAERS Safety Report 9858424 (Version 1)
Quarter: 2014Q1

REPORT INFORMATION
  Report Type: Spontaneous
  Country: US (occurrence: None)
  Receive Date: 20140129
  Receipt Date: 20140129
  Transmission Date: 20141002
  Serious: Yes (Other)
  Sender: FDA-Public Use
  Company Number: None

PATIENT
  Age: 58 Year
  Sex: Female
  Weight: 80 kg

DRUGS (1)
  1. ADENOSINE [Suspect]
     Dosage: 90NG/30ML?140MCG/KG/MIN?ONCE?INFUSION
     Dates: start: 20140127, end: 20140127

REACTIONS (1)
  - Unevaluable event [None]
